FAERS Safety Report 18509631 (Version 3)
Quarter: 2020Q4

REPORT INFORMATION
  Report Type: Report from Study
  Country: None (occurrence: IL)
  Receive Date: 20201117
  Receipt Date: 20201229
  Transmission Date: 20210114
  Serious: Yes (Hospitalization, Other)
  Sender: FDA-Public Use
  Company Number: IL-ABBVIE-20K-082-3587168-00

PATIENT
  Age: 62 Year
  Sex: Male

DRUGS (2)
  1. DUODOPA [Suspect]
     Active Substance: CARBIDOPA\LEVODOPA
     Dosage: MORNING DOSE:15.5(ML)/DAY CD: 4.3ML/HOUR, NIGHT CD: 5.0ML/HOUR, ED: 1.5ML,REMAINED AT 24
     Route: 050
     Dates: start: 20201213
  2. DUODOPA [Suspect]
     Active Substance: CARBIDOPA\LEVODOPA
     Indication: PARKINSON^S DISEASE
     Dosage: MORNING DOSE 15.5(ML) DOSE 4.3ML/HOUR,NIGHT DOSE 5.0ML/HOUR,EXTRA DOSE 1.5ML
     Route: 050
     Dates: start: 20190402, end: 20201111

REACTIONS (7)
  - Medical device removal [Recovered/Resolved]
  - Gastrectomy [Recovered/Resolved]
  - Embedded device [Recovered/Resolved]
  - Stoma site pain [Recovered/Resolved]
  - Stoma complication [Unknown]
  - Device issue [Recovered/Resolved]
  - Stoma site extravasation [Unknown]

NARRATIVE: CASE EVENT DATE: 202009
